FAERS Safety Report 4838231-9 (Version None)
Quarter: 2005Q4

REPORT INFORMATION
  Report Type: 
  Country: None (occurrence: None)
  Receive Date: 20051123
  Receipt Date: 20050209
  Transmission Date: 20060501
  Serious: Yes (Other)
  Sender: FDA-Public Use
  Company Number: 2005029147

PATIENT
  Sex: Male

DRUGS (3)
  1. NORVASC [Suspect]
     Indication: ILL-DEFINED DISORDER
     Dosage: UNKNOWN, ORAL
     Route: 048
  2. DRUG, UNSPECIFIED [Concomitant]
  3. TENORMIN [Concomitant]

REACTIONS (1)
  - PROSTATE CANCER [None]
